FAERS Safety Report 13163212 (Version 1)
Quarter: 2017Q1

REPORT INFORMATION
  Report Type: Spontaneous
  Country: US (occurrence: US)
  Receive Date: 20170130
  Receipt Date: 20170130
  Transmission Date: 20170428
  Serious: Yes (Other)
  Sender: FDA-Public Use
  Company Number: US-STI PHARMA LLC-1062504

PATIENT
  Age: 72 Year
  Sex: Male

DRUGS (2)
  1. ROLAPITANT [Suspect]
     Active Substance: ROLAPITANT
  2. DEXAMETHASONE. [Suspect]
     Active Substance: DEXAMETHASONE

REACTIONS (1)
  - Ischaemia [Unknown]
